FAERS Safety Report 8774516 (Version 2)
Quarter: 2012Q4

REPORT INFORMATION
  Report Type: 
  Country: US (occurrence: US)
  Receive Date: 20120907
  Receipt Date: 20121205
  Transmission Date: 20130627
  Serious: Yes (Hospitalization)
  Sender: FDA-Public Use
  Company Number: US-FRI-1000038229

PATIENT
  Age: 67 Year
  Sex: Female
  Weight: 80.7 kg

DRUGS (17)
  1. CELEXA [Suspect]
     Indication: DEPRESSION
     Dosage: 40 mg
     Route: 048
     Dates: start: 20070105
  2. PRILOSEC [Interacting]
     Indication: GASTROOESOPHAGEAL REFLUX DISEASE
     Dosage: 40 mg
     Route: 048
     Dates: start: 20060808, end: 20120719
  3. RILONACEPT [Interacting]
     Indication: GOUT
     Route: 058
     Dates: start: 20120315, end: 20120705
  4. RILONACEPT [Interacting]
     Route: 058
     Dates: start: 20120816
  5. ALLOPURINOL [Interacting]
     Indication: GOUT
     Dosage: 250 mg
     Route: 048
     Dates: start: 20120501
  6. ALLOPURINOL [Interacting]
     Dosage: 200 mg
     Route: 048
     Dates: start: 20120417, end: 20120430
  7. ALLOPURINOL [Interacting]
     Dosage: 150 mg
     Route: 048
     Dates: start: 20120404, end: 20120416
  8. ALLOPURINOL [Interacting]
     Dosage: 100 mg
     Route: 048
     Dates: start: 20120315, end: 20120403
  9. ARMOUR THYROID [Concomitant]
     Indication: THYROID HORMONE REPLACEMENT THERAPY
     Dosage: 60 mcg
     Route: 048
     Dates: start: 1972
  10. TOPROL XL [Concomitant]
     Indication: HYPERTENSION
     Dosage: 50 mg
     Route: 048
     Dates: start: 199601
  11. HYDROCHLOROTHIAZIDE [Concomitant]
     Indication: HYPERTENSION
     Dosage: 25 mg
     Route: 048
     Dates: start: 20060808
  12. GABAPENTIN [Concomitant]
     Indication: NEUROPATHY PERIPHERAL
     Dosage: 1200 mg
     Route: 048
     Dates: start: 20120214
  13. PREMARIN [Concomitant]
     Indication: HORMONE REPLACEMENT THERAPY
     Dosage: 0.225 mg
     Route: 048
     Dates: start: 20021205
  14. TYLENOL ARTHRITIS [Concomitant]
     Indication: ARTHRITIS
     Dates: start: 20090507
  15. CORTISONE [Concomitant]
     Indication: ARTHRALGIA
     Dates: start: 20120706, end: 20120706
  16. MULTIVITAMINS [Concomitant]
     Indication: ROUTINE HEALTH MAINTENANCE
     Dosage: 1 Dosage forms
     Route: 048
     Dates: start: 20070808
  17. ASPIRIN [Concomitant]
     Indication: ROUTINE HEALTH MAINTENANCE
     Dosage: 81 mg
     Route: 048
     Dates: start: 20110112

REACTIONS (1)
  - Drug interaction [Recovered/Resolved]
